FAERS Safety Report 19922113 (Version 9)
Quarter: 2022Q1

REPORT INFORMATION
  Report Type: Spontaneous
  Country: US (occurrence: US)
  Receive Date: 20211006
  Receipt Date: 20220202
  Transmission Date: 20220423
  Serious: Yes (Life-Threatening, Other)
  Sender: FDA-Public Use
  Company Number: US-NOVARTISPH-NVSC2021US222442

PATIENT
  Age: 84 Year
  Sex: Female

DRUGS (1)
  1. XIIDRA [Suspect]
     Active Substance: LIFITEGRAST
     Indication: Product used for unknown indication
     Dosage: 2 UNK, BID
     Route: 047
     Dates: start: 20210707, end: 20210707

REACTIONS (14)
  - Feeling abnormal [Unknown]
  - Vision blurred [Unknown]
  - Eye irritation [Recovering/Resolving]
  - Blindness transient [Unknown]
  - Blindness [Unknown]
  - Visual impairment [Recovered/Resolved]
  - Arthritis [Unknown]
  - Dizziness [Unknown]
  - Carpal tunnel syndrome [Unknown]
  - Hypoaesthesia [Unknown]
  - Dysphonia [Unknown]
  - Pruritus [Unknown]
  - Lacrimation increased [Unknown]
  - Conjunctivitis allergic [Recovering/Resolving]

NARRATIVE: CASE EVENT DATE: 20210707
